FAERS Safety Report 6103426-3 (Version None)
Quarter: 2009Q1

REPORT INFORMATION
  Report Type: 
  Country: None (occurrence: None)
  Receive Date: 20090305
  Receipt Date: 20090223
  Transmission Date: 20090719
  Serious: Yes (Other)
  Sender: FDA-Public Use
  Company Number: PHHY2009ZA06291

PATIENT
  Sex: Female

DRUGS (5)
  1. ACLASTA [Suspect]
     Dosage: UNK , UNK
  2. COZAAR [Concomitant]
     Indication: HYPERTENSION
  3. NORVASC [Concomitant]
     Indication: HYPERTENSION
  4. ACTIVELLE [Concomitant]
  5. FLUOXETINE [Concomitant]

REACTIONS (8)
  - FEELING COLD [None]
  - HIP SURGERY [None]
  - INFLUENZA LIKE ILLNESS [None]
  - JOINT SWELLING [None]
  - MYALGIA [None]
  - NASOPHARYNGITIS [None]
  - OSTEOPOROSIS [None]
  - WALKING AID USER [None]
